FAERS Safety Report 8206240-8 (Version None)
Quarter: 2012Q1

REPORT INFORMATION
  Report Type: 
  Country: None (occurrence: None)
  Receive Date: 20120313
  Receipt Date: 20120308
  Transmission Date: 20120608
  Serious: Yes (Other)
  Sender: FDA-Public Use
  Company Number: PHHY2011TR111022

PATIENT
  Sex: Male

DRUGS (1)
  1. ZOLEDRONOC ACID [Suspect]
     Indication: OSTEOPOROSIS
     Route: 042
     Dates: start: 20111216

REACTIONS (5)
  - BRADYCARDIA [None]
  - COLD SWEAT [None]
  - NAUSEA [None]
  - VOMITING [None]
  - INCORRECT DOSE ADMINISTERED [None]
